FAERS Safety Report 10753702 (Version 1)
Quarter: 2015Q1

REPORT INFORMATION
  Report Type: Spontaneous
  Country: US (occurrence: None)
  Receive Date: 20150129
  Receipt Date: 20150129
  Transmission Date: 20150721
  Serious: Yes (Disabling)
  Sender: FDA-Public Use
  Company Number: None

PATIENT
  Age: 39 Year
  Sex: Female
  Weight: 62.14 kg

DRUGS (1)
  1. LEVOFLOXACIN 750 MG [Suspect]
     Active Substance: LEVOFLOXACIN
     Indication: SINUSITIS
     Dosage: 1 TABLET FOR 21 DAYS, ONCE DAILY, TAKEN BY MOUTH?
     Route: 048
     Dates: start: 20150119, end: 20150128

REACTIONS (13)
  - Dizziness [None]
  - Conversion disorder [None]
  - Nausea [None]
  - Depression [None]
  - Anxiety [None]
  - Hyperventilation [None]
  - Insomnia [None]
  - Confusional state [None]
  - Feeling abnormal [None]
  - Crying [None]
  - Rash erythematous [None]
  - Feeling jittery [None]
  - Food craving [None]

NARRATIVE: CASE EVENT DATE: 20150128
